FAERS Safety Report 4634678-4 (Version None)
Quarter: 2005Q2

REPORT INFORMATION
  Report Type: 
  Country: None (occurrence: None)
  Receive Date: 20050413
  Receipt Date: 20050330
  Transmission Date: 20051028
  Serious: Yes (Other)
  Sender: FDA-Public Use
  Company Number: 2005053393

PATIENT
  Age: 28 Year
  Sex: Female

DRUGS (2)
  1. PREDNISONE [Suspect]
     Indication: ROSACEA
     Dosage: (35 MG), ORAL
     Route: 048
  2. ERYTHROMYCIN [Suspect]
     Indication: ROSACEA
     Dosage: (1500 MG), ORAL
     Route: 048

REACTIONS (5)
  - CAESAREAN SECTION [None]
  - DRUG EXPOSURE DURING PREGNANCY [None]
  - GESTATIONAL DIABETES [None]
  - OLIGOHYDRAMNIOS [None]
  - STILLBIRTH [None]
